FAERS Safety Report 8399484 (Version 3)
Quarter: 2012Q4

REPORT INFORMATION
  Report Type: 
  Country: US (occurrence: US)
  Receive Date: 20120210
  Receipt Date: 20120906
  Transmission Date: 20130627
  Serious: Yes (Disabling, Other)
  Sender: FDA-Public Use
  Company Number: US-BAYER-2012-012541

PATIENT
  Age: 35 Year
  Sex: Female

DRUGS (1)
  1. MIRENA [Suspect]
     Indication: MENORRHAGIA
     Dosage: 20 mcg/24hr, CONT
     Route: 015
     Dates: start: 20110926, end: 20120731

REACTIONS (3)
  - Vaginal haemorrhage [Recovered/Resolved]
  - Migraine [Recovering/Resolving]
  - Premenstrual syndrome [None]
